FAERS Safety Report 5233322-5 (Version None)
Quarter: 2007Q1

REPORT INFORMATION
  Report Type: 
  Country: None (occurrence: None)
  Receive Date: 20070206
  Receipt Date: 20070125
  Transmission Date: 20070707
  Serious: Yes (Hospitalization)
  Sender: FDA-Public Use
  Company Number: 2006US001648

PATIENT
  Age: 73 Year
  Sex: Female
  Weight: 93 kg

DRUGS (13)
  1. AMEVIVE [Suspect]
     Indication: PSORIASIS
     Dosage: 15 MG, WEEKLY, INTRAMUSCULAR
     Route: 030
     Dates: end: 20040805
  2. AMEVIVE [Suspect]
     Indication: PSORIASIS
     Dosage: 15 MG, WEEKLY, INTRAMUSCULAR
     Route: 030
     Dates: start: 20030910
  3. ASPIRIN [Concomitant]
  4. PLAVIX [Concomitant]
  5. LORAZEPAM [Concomitant]
  6. PREDNISONE TAB [Concomitant]
  7. POTASSIUM CHLORIDE [Concomitant]
  8. ATORVASTATIN CALCIUM [Concomitant]
  9. DUONEB [Concomitant]
  10. VERAPAMIL [Concomitant]
  11. SPIRIVA [Concomitant]
  12. MAGNESIUM OXIDE (MAGNESIUM OXIDE) [Concomitant]
  13. CIPRO [Concomitant]

REACTIONS (4)
  - ACUTE RESPIRATORY FAILURE [None]
  - CARDIAC FAILURE CONGESTIVE [None]
  - CORONARY ARTERY STENOSIS [None]
  - VENTRICULAR TACHYCARDIA [None]
